FAERS Safety Report 5370644-1 (Version None)
Quarter: 2007Q2

REPORT INFORMATION
  Report Type: 
  Country: None (occurrence: None)
  Receive Date: 20070626
  Receipt Date: 20070614
  Transmission Date: 20071010
  Serious: Yes (Hospitalization)
  Sender: FDA-Public Use
  Company Number: JP-GENENTECH-243045

PATIENT
  Sex: Male

DRUGS (19)
  1. RANIBIZUMAB [Suspect]
     Indication: MACULAR DEGENERATION
     Dosage: 500 A?G, UNK
     Route: 031
     Dates: start: 20060725
  2. VITAMEDIN [Concomitant]
     Indication: DRUG USE FOR UNKNOWN INDICATION
  3. PYRIDOXINE HCL [Concomitant]
     Indication: DRUG USE FOR UNKNOWN INDICATION
  4. TRYPTANOL [Concomitant]
     Indication: DRUG USE FOR UNKNOWN INDICATION
  5. ADALAT [Concomitant]
     Indication: DRUG USE FOR UNKNOWN INDICATION
  6. SEPAZON [Concomitant]
     Indication: DRUG USE FOR UNKNOWN INDICATION
  7. GASTROM [Concomitant]
     Indication: DRUG USE FOR UNKNOWN INDICATION
  8. DOXAZOSIN MESYLATE [Concomitant]
     Indication: DRUG USE FOR UNKNOWN INDICATION
  9. EURODIN [Concomitant]
     Indication: DRUG USE FOR UNKNOWN INDICATION
  10. ISOMYTAL [Concomitant]
     Indication: DRUG USE FOR UNKNOWN INDICATION
  11. HALCION [Concomitant]
     Indication: DRUG USE FOR UNKNOWN INDICATION
  12. KETOPROFEN [Concomitant]
     Indication: DRUG USE FOR UNKNOWN INDICATION
  13. KETOPROFEN [Concomitant]
  14. KETOPROFEN [Concomitant]
  15. CEFZON [Concomitant]
     Indication: DRUG USE FOR UNKNOWN INDICATION
  16. LOXONIN [Concomitant]
     Indication: DRUG USE FOR UNKNOWN INDICATION
  17. SELBEX [Concomitant]
     Indication: DRUG USE FOR UNKNOWN INDICATION
  18. XYLOCAIN [Concomitant]
     Indication: DRUG USE FOR UNKNOWN INDICATION
  19. LEVOFLOXACIN [Concomitant]
     Indication: DRUG USE FOR UNKNOWN INDICATION

REACTIONS (2)
  - ANOREXIA [None]
  - HYPOAESTHESIA [None]
